FAERS Safety Report 23389496 (Version 3)
Quarter: 2024Q1

REPORT INFORMATION
  Report Type: Report from Study
  Country: CA (occurrence: None)
  Receive Date: 20240110
  Receipt Date: 20240131
  Transmission Date: 20240409
  Serious: Yes (Disabling)
  Sender: FDA-Public Use
  Company Number: 2024A003877

PATIENT
  Age: 23354 Day
  Sex: Male

DRUGS (18)
  1. IMFINZI [Suspect]
     Active Substance: DURVALUMAB
     Indication: Biliary neoplasm
     Route: 042
     Dates: start: 20230505
  2. METRONIDAZOLE [Concomitant]
     Active Substance: METRONIDAZOLE
     Dosage: TAKE 2 TABLETS 3 TIMES DAILY WHILE EATING
     Dates: end: 20240122
  3. CIPROFLOXACIN [Concomitant]
     Active Substance: CIPROFLOXACIN
     Dosage: TAKE 1 TABLET TWICE DAILY EVERY 12 HOURS
     Dates: end: 20240122
  4. ALFUZOSIN [Concomitant]
     Active Substance: ALFUZOSIN
     Indication: Prostatic disorder
  5. PANTOPRAZOLE [Concomitant]
     Active Substance: PANTOPRAZOLE
     Indication: Ulcer
     Dosage: 1 TABLET ONCE DAILY BEFORE LUNCH
  6. PANTOPRAZOLE [Concomitant]
     Active Substance: PANTOPRAZOLE
     Indication: Gastrooesophageal reflux disease
     Dosage: 1 TABLET ONCE DAILY BEFORE LUNCH
  7. BISOPROLOL [Concomitant]
     Active Substance: BISOPROLOL\BISOPROLOL FUMARATE
     Dosage: 2.5 MG ONCE DAILY REGULARLY AT THE SAME HOUR EACH DAY
  8. ASPIRIN [Concomitant]
     Active Substance: ASPIRIN
     Indication: Antiplatelet therapy
     Dosage: 1 TABLET ONCE DAILY IN THE MIDDLE OF THE MEAL AT LUNCH
  9. ROSUVASTATIN [Concomitant]
     Active Substance: ROSUVASTATIN
  10. OXAZEPAM [Concomitant]
     Active Substance: OXAZEPAM
     Dosage: 1 DF ONCE DAILY AT BEDTIME IF NEEDED
  11. PREDNISONE [Concomitant]
     Active Substance: PREDNISONE
     Dosage: TAKE TABLETS 8 ONCE DAILY FOR 5 DAYS (40 MG), TAKE 6 TABLETS ONCE DAILY FOR 5 DAYS (30 MG), TAKE ...
  12. JAMP MAGNESIUM [Concomitant]
  13. CR TAMSULOSIN [Concomitant]
     Indication: Prostatic disorder
  14. JAMP MAGNESIUM [Concomitant]
  15. NITROGLYCERIN [Concomitant]
     Active Substance: NITROGLYCERIN
     Dosage: AS REQUIRED
     Route: 048
  16. AMOXICILLIN\CLAVULANATE POTASSIUM [Concomitant]
     Active Substance: AMOXICILLIN\CLAVULANATE POTASSIUM
     Dosage: TAKE 1 TABLET TWICE DAILY IN THE MORNING EVENING WHILE EATING FOR 7 DAYS
  17. ACETAMINOPHEN [Concomitant]
     Active Substance: ACETAMINOPHEN
     Dosage: 2 DF 3 TIMES DAILY IF NEEDED
  18. SALINEX [Concomitant]
     Dosage: SPRAY INTO NOSTRILS AS NEEDED (NASAL LUBRICANT) 3 TIMES DAILY

REACTIONS (1)
  - Autoimmune arthritis [Recovering/Resolving]

NARRATIVE: CASE EVENT DATE: 20231210
